FAERS Safety Report 4486850-4 (Version None)
Quarter: 2004Q3

REPORT INFORMATION
  Report Type: 
  Country: None (occurrence: None)
  Receive Date: 20040921
  Receipt Date: 20030819
  Transmission Date: 20050211
  Serious: Yes (Hospitalization)
  Sender: FDA-Public Use
  Company Number: 163-20785-03080575

PATIENT
  Age: 71 Year
  Sex: Male

DRUGS (5)
  1. THALOMID [Suspect]
     Indication: MULTIPLE MYELOMA
     Dosage: 400 MG, ORAL
     Route: 048
     Dates: start: 20030517, end: 20030720
  2. CYTOXAN [Suspect]
     Indication: MULTIPLE MYELOMA
     Dosage: 1440 MG, INTRAVENOUS
     Route: 042
     Dates: start: 20030717, end: 20030720
  3. ADRIAMYCIN PFS [Suspect]
     Indication: MULTIPLE MYELOMA
     Dosage: 29 MG, INTRAVENOUS
     Route: 042
     Dates: start: 20030717, end: 20030720
  4. DEXAMETHASONE [Concomitant]
     Indication: MULTIPLE MYELOMA
     Dosage: 40 MG, ORAL
     Route: 048
     Dates: start: 20030717, end: 20030720
  5. G-CSF (GRANULOCYTE COLONY STIMULATING FACTOR) [Concomitant]

REACTIONS (2)
  - CHEST PAIN [None]
  - SINUS BRADYCARDIA [None]
